FAERS Safety Report 8029472-0 (Version None)
Quarter: 2012Q1

REPORT INFORMATION
  Report Type: 
  Country: None (occurrence: None)
  Receive Date: 20120108
  Receipt Date: 20111228
  Transmission Date: 20120608
  Serious: Yes (Death)
  Sender: FDA-Public Use
  Company Number: JP-AMGEN-JPNCT2011069920

PATIENT
  Age: 75 Year
  Sex: Male

DRUGS (3)
  1. OXALIPLATIN [Concomitant]
     Indication: COLORECTAL CANCER
     Dosage: UNK
     Route: 041
     Dates: start: 20110805
  2. PANITUMUMAB [Suspect]
     Indication: COLORECTAL CANCER
     Dosage: UNK UNK, Q2WK
     Dates: start: 20110805
  3. CAPECITABINE [Concomitant]
     Indication: COLORECTAL CANCER
     Dosage: UNK
     Route: 048
     Dates: start: 20110805

REACTIONS (1)
  - COLORECTAL CANCER [None]
